FAERS Safety Report 26156337 (Version 1)
Quarter: 2025Q4

REPORT INFORMATION
  Report Type: Report from Study
  Country: US (occurrence: US)
  Receive Date: 20251215
  Receipt Date: 20251215
  Transmission Date: 20260117
  Serious: Yes (Other)
  Sender: ALEXION PHARMACEUTICALS
  Company Number: US-AstraZeneca-CH-01011467A

PATIENT
  Sex: Female

DRUGS (2)
  1. RAVULIZUMAB [Suspect]
     Active Substance: RAVULIZUMAB
     Indication: Neuromyelitis optica spectrum disorder
     Dosage: UNK
     Route: 065
  2. SOLIRIS [Suspect]
     Active Substance: ECULIZUMAB
     Indication: Neuromyelitis optica spectrum disorder
     Dosage: UNK
     Route: 065

REACTIONS (9)
  - Deafness [Unknown]
  - Brain fog [Unknown]
  - Vision blurred [Unknown]
  - Eye pruritus [Unknown]
  - Diplopia [Unknown]
  - Headache [Unknown]
  - Urinary tract infection [Unknown]
  - Eye swelling [Unknown]
  - Ocular hyperaemia [Unknown]
